FAERS Safety Report 9951758 (Version 1)
Quarter: 2014Q1

REPORT INFORMATION
  Report Type: Report from Study
  Country: US (occurrence: US)
  Receive Date: 20140304
  Receipt Date: 20140304
  Transmission Date: 20141002
  Serious: No
  Sender: FDA-Public Use
  Company Number: US-ABBVIE-13P-163-1071508-00

PATIENT
  Age: 45 Year
  Sex: Female

DRUGS (1)
  1. HUMIRA [Suspect]
     Indication: CROHN^S DISEASE
     Route: 058

REACTIONS (6)
  - Fatigue [Unknown]
  - Sinusitis [Unknown]
  - Vocal cord thickening [Unknown]
  - Pleurisy [Unknown]
  - Atypical pneumonia [Unknown]
  - Crohn^s disease [Not Recovered/Not Resolved]
